FAERS Safety Report 10102459 (Version 1)
Quarter: 2014Q2

REPORT INFORMATION
  Report Type: Spontaneous
  Country: TR (occurrence: None)
  Receive Date: 20140422
  Receipt Date: 20140422
  Transmission Date: 20141212
  Serious: Yes (Hospitalization)
  Sender: FDA-Public Use
  Company Number: 2014P1003174

PATIENT
  Age: 8 Year
  Sex: Female

DRUGS (3)
  1. FACTREL [Suspect]
     Route: 042
  2. TRIPTORELIN [Concomitant]
  3. ACETATE [Concomitant]

REACTIONS (7)
  - Tonic convulsion [None]
  - Urticaria [None]
  - Cyanosis [None]
  - Hypotension [None]
  - Tongue oedema [None]
  - Lip oedema [None]
  - Eyelid oedema [None]
